FAERS Safety Report 10631706 (Version 2)
Quarter: 2014Q4

REPORT INFORMATION
  Report Type: Spontaneous
  Country: US (occurrence: US)
  Receive Date: 20141205
  Receipt Date: 20141205
  Transmission Date: 20150529
  Serious: Yes (Hospitalization)
  Sender: FDA-Public Use
  Company Number: US-BRISTOL-MYERS SQUIBB COMPANY-21171954

PATIENT
  Age: 57 Year
  Sex: Female

DRUGS (1)
  1. YERVOY [Suspect]
     Active Substance: IPILIMUMAB
     Indication: METASTATIC MALIGNANT MELANOMA
     Dosage: LAST DOSE ON JUNE 18TH 2014; 24JUN14
     Route: 042
     Dates: start: 20140513

REACTIONS (3)
  - Malignant neoplasm progression [Unknown]
  - Skin mass [Unknown]
  - Troponin increased [Unknown]

NARRATIVE: CASE EVENT DATE: 2014
